FAERS Safety Report 4665437-4 (Version None)
Quarter: 2005Q2

REPORT INFORMATION
  Report Type: 
  Country: None (occurrence: None)
  Receive Date: 20050518
  Receipt Date: 20050518
  Transmission Date: 20051028
  Serious: Yes (Hospitalization)
  Sender: FDA-Public Use
  Company Number: None

PATIENT
  Sex: Male

DRUGS (4)
  1. METHADONE 10 MG [Suspect]
     Indication: PHANTOM PAIN
     Dosage: 30 MG EVERY 8 HRS ORAL
     Route: 048
     Dates: start: 20041012, end: 20050118
  2. ATENOLOL [Concomitant]
  3. GABAPENTIN [Concomitant]
  4. SIMVASTATIN [Concomitant]

REACTIONS (1)
  - IMPAIRED GASTRIC EMPTYING [None]
